FAERS Safety Report 7928465-9 (Version None)
Quarter: 2011Q4

REPORT INFORMATION
  Report Type: 
  Country: None (occurrence: None)
  Receive Date: 20111118
  Receipt Date: 20111114
  Transmission Date: 20120403
  Serious: Yes (Death, Other)
  Sender: FDA-Public Use
  Company Number: US-JNJFOC-20070302404

PATIENT
  Age: 6 Month
  Sex: Male

DRUGS (2)
  1. PSEUDOEPHEDRINE HCL [Suspect]
  2. PSEUDOEPHEDRINE HCL [Suspect]
     Indication: PRODUCT USED FOR UNKNOWN INDICATION

REACTIONS (2)
  - HYPOXIC-ISCHAEMIC ENCEPHALOPATHY [None]
  - DRUG SCREEN POSITIVE [None]
